FAERS Safety Report 6119161-1 (Version None)
Quarter: 2009Q1

REPORT INFORMATION
  Report Type: 
  Country: None (occurrence: None)
  Receive Date: 20090311
  Receipt Date: 20090224
  Transmission Date: 20090719
  Serious: Yes (Other)
  Sender: FDA-Public Use
  Company Number: 2009S1003215

PATIENT
  Age: 38 Year
  Sex: Male

DRUGS (6)
  1. OXYBUTYNIN CHLORIDE [Suspect]
     Indication: BLADDER SPASM
     Dosage: 15 MG;DAILY
  2. CYCLOSPORINE [Concomitant]
  3. MYCOPHENOLIC ACID [Concomitant]
  4. PREDNISOLONE [Concomitant]
  5. FUROSEMIDE [Concomitant]
  6. NITRENDIPXNE [Concomitant]

REACTIONS (13)
  - ABASIA [None]
  - ACUTE PSYCHOSIS [None]
  - AGITATION [None]
  - APRAXIA [None]
  - DELIRIUM [None]
  - DISORIENTATION [None]
  - HALLUCINATIONS, MIXED [None]
  - HYPOTONIA [None]
  - INSOMNIA [None]
  - PERSECUTORY DELUSION [None]
  - PSYCHOMOTOR HYPERACTIVITY [None]
  - RENAL FAILURE [None]
  - SOMNOLENCE [None]
